FAERS Safety Report 8150194-X (Version None)
Quarter: 2012Q1

REPORT INFORMATION
  Report Type: 
  Country: None (occurrence: None)
  Receive Date: 20120220
  Receipt Date: 20120214
  Transmission Date: 20120608
  Serious: No
  Sender: FDA-Public Use
  Company Number: US-PFIZER INC-2012040409

PATIENT
  Sex: Male
  Weight: 81.633 kg

DRUGS (3)
  1. TRAVATAN [Concomitant]
     Dosage: UNK
  2. XALATAN [Suspect]
     Indication: GLAUCOMA
  3. XALATAN [Suspect]
     Indication: INTRAOCULAR PRESSURE TEST ABNORMAL
     Dosage: 1 GTT IN EACH EYE, DAILY
     Dates: start: 20111201, end: 20111201

REACTIONS (1)
  - EYE IRRITATION [None]
